FAERS Safety Report 4898532-5 (Version None)
Quarter: 2006Q1

REPORT INFORMATION
  Report Type: 
  Country: None (occurrence: None)
  Receive Date: 20060202
  Receipt Date: 20060124
  Transmission Date: 20060701
  Serious: Yes (Other)
  Sender: FDA-Public Use
  Company Number: PHBS2006BE01412

PATIENT
  Age: 20 Year
  Sex: Male

DRUGS (1)
  1. DESFERAL [Suspect]
     Indication: THALASSAEMIA
     Route: 065

REACTIONS (5)
  - DIABETES MELLITUS INSULIN-DEPENDENT [None]
  - OESOPHAGITIS [None]
  - OPTIC NEUROPATHY [None]
  - PERSONALITY DISORDER [None]
  - RETINOPATHY [None]
